FAERS Safety Report 9911107 (Version 3)
Quarter: 2015Q3

REPORT INFORMATION
  Report Type: Spontaneous
  Country: US (occurrence: US)
  Receive Date: 20140219
  Receipt Date: 20150811
  Transmission Date: 20151125
  Serious: Yes (Other)
  Sender: FDA-Public Use
  Company Number: US-GILEAD-2012-0052501

PATIENT
  Age: 73 Year
  Sex: Female

DRUGS (11)
  1. CLIMARA [Concomitant]
     Active Substance: ESTRADIOL
  2. NASONEX [Concomitant]
     Active Substance: MOMETASONE FUROATE
  3. LETAIRIS [Suspect]
     Active Substance: AMBRISENTAN
     Indication: DRUG THERAPY
  4. CALCIUM CITRATE/VITAMIN D [Concomitant]
     Active Substance: CALCIUM CITRATE\VITAMIN D
  5. DIFLUCAN [Concomitant]
     Active Substance: FLUCONAZOLE
  6. CELEBREX [Concomitant]
     Active Substance: CELECOXIB
  7. LETAIRIS [Suspect]
     Active Substance: AMBRISENTAN
     Indication: PULMONARY HYPERTENSION
     Dosage: 5 MG, UNK
     Route: 048
     Dates: start: 20120112, end: 201203
  8. LASIX [Concomitant]
     Active Substance: FUROSEMIDE
  9. ASPIRIN. [Concomitant]
     Active Substance: ASPIRIN
  10. CYTOMEL [Concomitant]
     Active Substance: LIOTHYRONINE SODIUM
  11. SYNTHROID [Concomitant]
     Active Substance: LEVOTHYROXINE SODIUM

REACTIONS (9)
  - Chest discomfort [Unknown]
  - Oedema peripheral [Recovered/Resolved]
  - Electrolyte imbalance [Recovered/Resolved]
  - Swelling [Unknown]
  - Dyspnoea [Unknown]
  - Oedema [Unknown]
  - Chest pain [Unknown]
  - Unevaluable event [Unknown]
  - Drug ineffective [Unknown]

NARRATIVE: CASE EVENT DATE: 20120331
